FAERS Safety Report 10257783 (Version 1)
Quarter: 2014Q2

REPORT INFORMATION
  Report Type: Spontaneous
  Country: US (occurrence: None)
  Receive Date: 20140623
  Receipt Date: 20140623
  Transmission Date: 20141212
  Serious: No
  Sender: FDA-Public Use
  Company Number: None

PATIENT
  Age: 36 Year
  Sex: Male
  Weight: 74.9 kg

DRUGS (2)
  1. MEPERIDINE [Suspect]
     Indication: ENDOSCOPY UPPER GASTROINTESTINAL TRACT
     Dosage: 125 MG  ONCE  IV
     Route: 042
     Dates: start: 20140613, end: 20140613
  2. MEPERIDINE [Suspect]
     Indication: SEDATION
     Dosage: 125 MG  ONCE  IV
     Route: 042
     Dates: start: 20140613, end: 20140613

REACTIONS (1)
  - Sedation [None]
